FAERS Safety Report 10563104 (Version 1)
Quarter: 2014Q4

REPORT INFORMATION
  Report Type: Spontaneous
  Country: US (occurrence: None)
  Receive Date: 20141103
  Receipt Date: 20141103
  Transmission Date: 20150529
  Serious: No
  Sender: FDA-Public Use
  Company Number: None

PATIENT
  Age: 82 Year
  Sex: Male

DRUGS (6)
  1. LISINOPRIL. [Suspect]
     Active Substance: LISINOPRIL
     Indication: HYPERTENSION
     Route: 048
     Dates: start: 20140819
  2. NIFEDIPINE. [Concomitant]
     Active Substance: NIFEDIPINE
  3. VITAMIN D [Concomitant]
     Active Substance: CHOLECALCIFEROL
  4. FERROUS SULFATE [Concomitant]
     Active Substance: FERROUS SULFATE\FERROUS SULFATE, DRIED
  5. OMEPRAZOLE. [Concomitant]
     Active Substance: OMEPRAZOLE
  6. LISINOPRIL. [Concomitant]
     Active Substance: LISINOPRIL

REACTIONS (5)
  - Metabolic acidosis [None]
  - Anaemia [None]
  - Hyperkalaemia [None]
  - Acute kidney injury [None]
  - Hypovolaemia [None]

NARRATIVE: CASE EVENT DATE: 20140819
